FAERS Safety Report 10189615 (Version 2)
Quarter: 2014Q2

REPORT INFORMATION
  Report Type: Spontaneous
  Country: HK (occurrence: HK)
  Receive Date: 20140522
  Receipt Date: 20140529
  Transmission Date: 20141212
  Serious: Yes (Hospitalization)
  Sender: FDA-Public Use
  Company Number: HK-GLAXOSMITHKLINE-B0985315A

PATIENT
  Age: 66 Year
  Sex: Male

DRUGS (3)
  1. VOTRIENT [Suspect]
     Indication: RENAL CELL CARCINOMA
     Dosage: 600MG UNKNOWN
     Route: 065
  2. RADIOTHERAPY [Concomitant]
     Indication: PRODUCT USED FOR UNKNOWN INDICATION
     Route: 065
  3. ARCOXIA [Concomitant]

REACTIONS (6)
  - Renal failure [Unknown]
  - Chest pain [Unknown]
  - Dyspepsia [Unknown]
  - Vomiting [Not Recovered/Not Resolved]
  - Abdominal pain upper [Recovered/Resolved]
  - Oesophagitis [Unknown]
